FAERS Safety Report 12870725 (Version 1)
Quarter: 2016Q4

REPORT INFORMATION
  Report Type: Spontaneous
  Country: US (occurrence: US)
  Receive Date: 20161021
  Receipt Date: 20161021
  Transmission Date: 20170207
  Serious: Yes (Other)
  Sender: FDA-Public Use
  Company Number: US-INTERCEPT PHARMACEUTICALS, INC.-1058599

PATIENT
  Sex: Female

DRUGS (4)
  1. CALCIUM [Concomitant]
     Active Substance: CALCIUM
  2. OCALIVA [Suspect]
     Active Substance: OBETICHOLIC ACID
     Route: 048
  3. MULTIVITAMIN [Concomitant]
     Active Substance: VITAMINS
  4. URSO [Concomitant]
     Active Substance: URSODIOL

REACTIONS (6)
  - Decreased appetite [Recovering/Resolving]
  - Malaise [Unknown]
  - Blood bilirubin increased [Unknown]
  - Jaundice [Unknown]
  - Blood alkaline phosphatase increased [Unknown]
  - Pruritus [Unknown]
